FAERS Safety Report 14927616 (Version 1)
Quarter: 2018Q2

REPORT INFORMATION
  Report Type: Spontaneous
  Country: GB (occurrence: GB)
  Receive Date: 20180523
  Receipt Date: 20180523
  Transmission Date: 20180711
  Serious: Yes (Other)
  Sender: FDA-Public Use
  Company Number: GB-TEVA-2018-GB-896421

PATIENT
  Age: 82 Year
  Sex: Male
  Weight: 54 kg

DRUGS (5)
  1. AMLODIPINE [Concomitant]
     Active Substance: AMLODIPINE BESYLATE
     Dosage: 1 DOSAGE FORMS DAILY;
     Dates: start: 20171116, end: 20180109
  2. XARELTO [Concomitant]
     Active Substance: RIVAROXABAN
     Dosage: 1 DOSAGE FORMS DAILY;
     Dates: start: 20171205, end: 20180109
  3. ATENOLOL. [Concomitant]
     Active Substance: ATENOLOL
     Dosage: 1 DOSAGE FORMS DAILY; EACH MORNING.
     Dates: start: 20171116, end: 20180109
  4. CO-AMOXICLAV [Suspect]
     Active Substance: AMOXICILLIN\CLAVULANIC ACID
     Route: 065
     Dates: start: 20180301
  5. BENDROFLUMETHIAZIDE [Concomitant]
     Active Substance: BENDROFLUMETHIAZIDE
     Dosage: 1 DOSAGE FORMS DAILY; EACH MORNING.
     Dates: start: 20171116, end: 20180109

REACTIONS (1)
  - Rash macular [Recovered/Resolved]

NARRATIVE: CASE EVENT DATE: 20180301
